FAERS Safety Report 16970762 (Version 1)
Quarter: 2019Q4

REPORT INFORMATION
  Report Type: Spontaneous
  Country: US (occurrence: US)
  Receive Date: 20191029
  Receipt Date: 20191029
  Transmission Date: 20200122
  Serious: Yes (Death, Other)
  Sender: FDA-Public Use
  Company Number: US-FRESENIUS KABI-FK201911748

PATIENT
  Sex: Male

DRUGS (2)
  1. SMOFLIPID [Suspect]
     Active Substance: FISH OIL\MEDIUM-CHAIN TRIGLYCERIDES\OLIVE OIL\SOYBEAN OIL
     Indication: PARENTERAL NUTRITION
     Route: 065
  2. OMEGAVEN [Suspect]
     Active Substance: FISH OIL
     Indication: PARENTERAL NUTRITION
     Dosage: UNKNOWN
     Route: 065

REACTIONS (3)
  - Ill-defined disorder [Fatal]
  - Product use issue [Unknown]
  - Cholestasis [Unknown]
